FAERS Safety Report 5263784-9 (Version None)
Quarter: 2007Q1

REPORT INFORMATION
  Report Type: 
  Country: None (occurrence: None)
  Receive Date: 20070313
  Receipt Date: 20070226
  Transmission Date: 20070707
  Serious: Yes (Hospitalization)
  Sender: FDA-Public Use
  Company Number: US-AMGEN-US212709

PATIENT
  Sex: Female

DRUGS (4)
  1. ENBREL [Suspect]
     Indication: RHEUMATOID ARTHRITIS
     Dates: start: 20010101, end: 20061225
  2. LOTREL [Concomitant]
     Route: 048
  3. FOLIC ACID [Concomitant]
     Route: 048
  4. CLARITIN [Concomitant]
     Route: 048

REACTIONS (3)
  - HERPES ZOSTER [None]
  - INFLUENZA [None]
  - RHEUMATOID ARTHRITIS [None]
